FAERS Safety Report 7704820-7 (Version None)
Quarter: 2011Q3

REPORT INFORMATION
  Report Type: 
  Country: None (occurrence: None)
  Receive Date: 20110823
  Receipt Date: 20110808
  Transmission Date: 20111222
  Serious: Yes (Disabling)
  Sender: FDA-Public Use
  Company Number: GB-ELI_LILLY_AND_COMPANY-GB201108002791

PATIENT
  Age: 75 Year
  Sex: Male

DRUGS (9)
  1. LEVOTHYROXINE SODIUM [Concomitant]
  2. DULOXETIME HYDROCHLORIDE [Suspect]
     Dosage: 60 MG, BID
     Route: 048
     Dates: start: 20110720
  3. METHOCARBAMOL [Concomitant]
     Indication: MUSCLE SPASMS
     Dosage: 750 MG, TID
     Route: 048
     Dates: start: 20110727
  4. PERINDOPRIL [Concomitant]
  5. GLICLAZIDE [Concomitant]
  6. METFORMIN HCL [Concomitant]
  7. SIMVASTATIN [Concomitant]
  8. QUININE SULFATE [Concomitant]
  9. ACTOS [Suspect]
     Indication: DIABETES MELLITUS
     Dosage: 45 MG, QD
     Route: 048
     Dates: start: 20100601

REACTIONS (1)
  - BEDRIDDEN [None]
